FAERS Safety Report 4523618-4 (Version None)
Quarter: 2005Q1

REPORT INFORMATION
  Report Type: 
  Country: None (occurrence: None)
  Receive Date: 20041119
  Receipt Date: 20041015
  Transmission Date: 20050727
  Serious: No
  Sender: FDA-Public Use
  Company Number: 209706

PATIENT
  Age: 48 Year
  Sex: Male

DRUGS (1)
  1. RAPTIVA [Suspect]
     Indication: PSORIASIS

REACTIONS (1)
  - PSORIASIS [None]
